FAERS Safety Report 6199251-8 (Version None)
Quarter: 2009Q2

REPORT INFORMATION
  Report Type: 
  Country: None (occurrence: None)
  Receive Date: 20090519
  Receipt Date: 20090506
  Transmission Date: 20091009
  Serious: Yes (Death)
  Sender: FDA-Public Use
  Company Number: 1-17613908

PATIENT
  Age: 64 Year
  Sex: Male
  Weight: 62.7778 kg

DRUGS (19)
  1. ACYCLOVIR [Suspect]
     Indication: HERPES VIRUS INFECTION
     Dosage: 400 MG TWICE DAILY, ORAL
     Route: 048
     Dates: start: 20081211, end: 20081211
  2. ACYCLOVIR [Suspect]
     Indication: PROPHYLAXIS
     Dosage: 400 MG TWICE DAILY, ORAL
     Route: 048
     Dates: start: 20081211, end: 20081211
  3. MARIBAVIR 100 MG TABLETS [Suspect]
     Indication: CYTOMEGALOVIRUS INFECTION
     Dosage: 100 MG TWICE DAILY, ORAL
     Route: 048
     Dates: start: 20081211, end: 20081211
  4. MARIBAVIR 100 MG TABLETS [Suspect]
     Indication: PROPHYLAXIS
     Dosage: 100 MG TWICE DAILY, ORAL
     Route: 048
     Dates: start: 20081211, end: 20081211
  5. GANCICLOVIR 500 MG PLACEBO CAPSULES [Suspect]
     Indication: CYTOMEGALOVIRUS INFECTION
     Dosage: 1000 MG THREE TIMES DAILY, ORAL
     Route: 048
     Dates: start: 20081211, end: 20081211
  6. GANCICLOVIR 500 MG PLACEBO CAPSULES [Suspect]
     Indication: PROPHYLAXIS
     Dosage: 1000 MG THREE TIMES DAILY, ORAL
     Route: 048
     Dates: start: 20081211, end: 20081211
  7. SOLU-MEDROL [Concomitant]
  8. CELLCEPT [Concomitant]
  9. PROGRAF [Concomitant]
  10. BACTRIM [Concomitant]
  11. NEXIUM [Concomitant]
  12. TRIFLUCAN [Concomitant]
  13. PARACETAMOL [Concomitant]
  14. LOVENOX [Concomitant]
  15. KAYEXALATE [Concomitant]
  16. CORDARONE [Concomitant]
  17. CORTANCYL [Concomitant]
  18. HEMISUCCINATE OF HYDROCORTISONE [Concomitant]
  19. UMULINE [Concomitant]

REACTIONS (10)
  - ALTERED STATE OF CONSCIOUSNESS [None]
  - ARRHYTHMIA [None]
  - ASCITES [None]
  - BLOOD BILIRUBIN INCREASED [None]
  - BLOOD CREATININE DECREASED [None]
  - BLOOD UREA DECREASED [None]
  - HYPOTENSION [None]
  - LUNG DISORDER [None]
  - RESPIRATORY DISTRESS [None]
  - WOUND EVISCERATION [None]
